FAERS Safety Report 4466968-2 (Version None)
Quarter: 2004Q4

REPORT INFORMATION
  Report Type: 
  Country: None (occurrence: None)
  Receive Date: 20041004
  Receipt Date: 20041001
  Transmission Date: 20050328
  Serious: Yes (Other)
  Sender: FDA-Public Use
  Company Number: 002017

PATIENT
  Sex: Female

DRUGS (6)
  1. MEDROXYPROGESTERONE ACETATE [Suspect]
     Indication: HORMONE REPLACEMENT THERAPY
  2. MEDROXYPROGESTERONE ACETATE [Suspect]
     Indication: HORMONE REPLACEMENT THERAPY
  3. PREMARIN [Suspect]
     Indication: HORMONE REPLACEMENT THERAPY
  4. ORTHO-EST [Suspect]
  5. PROVERA [Suspect]
     Indication: HORMONE REPLACEMENT THERAPY
  6. ESTROGENS-GENERIC [Suspect]
     Indication: HORMONE REPLACEMENT THERAPY

REACTIONS (3)
  - BREAST CANCER FEMALE [None]
  - DEEP VEIN THROMBOSIS [None]
  - THROMBOSIS [None]
